FAERS Safety Report 6030664-0 (Version None)
Quarter: 2009Q1

REPORT INFORMATION
  Report Type: 
  Country: None (occurrence: None)
  Receive Date: 20090107
  Receipt Date: 20080819
  Transmission Date: 20090719
  Serious: No
  Sender: FDA-Public Use
  Company Number: A0743258A

PATIENT
  Age: 70 Year

DRUGS (1)
  1. TAGAMET HB [Suspect]

REACTIONS (2)
  - ABDOMINAL PAIN UPPER [None]
  - EXPIRED DRUG ADMINISTERED [None]
